FAERS Safety Report 13897749 (Version 1)
Quarter: 2017Q3

REPORT INFORMATION
  Report Type: Report from Study
  Country: US (occurrence: US)
  Receive Date: 20170823
  Receipt Date: 20170823
  Transmission Date: 20171127
  Serious: Yes (Hospitalization, Other)
  Sender: FDA-Public Use
  Company Number: US-BAYER-2017-032606

PATIENT
  Age: 73 Year
  Sex: Male
  Weight: 111.57 kg

DRUGS (8)
  1. ADEMPAS [Suspect]
     Active Substance: RIOCIGUAT
     Indication: PULMONARY HYPERTENSION
     Dosage: 2.5 MG, TID
     Route: 048
  2. COUMADIN [Concomitant]
     Active Substance: WARFARIN SODIUM
  3. DILTIAZEM. [Concomitant]
     Active Substance: DILTIAZEM
  4. ADEMPAS [Suspect]
     Active Substance: RIOCIGUAT
     Indication: PULMONARY HYPERTENSION
     Dosage: UNK
     Route: 048
     Dates: start: 20150615
  5. REMODULIN [Concomitant]
     Active Substance: TREPROSTINIL
  6. ADEMPAS [Suspect]
     Active Substance: RIOCIGUAT
     Indication: PULMONARY HYPERTENSION
     Dosage: 2.5 MG, TID
     Route: 048
  7. ADEMPAS [Suspect]
     Active Substance: RIOCIGUAT
     Indication: PULMONARY HYPERTENSION
     Dosage: 2.5 MG, TID
     Route: 048
  8. WARFARIN [Concomitant]
     Active Substance: WARFARIN
     Dosage: UNK

REACTIONS (7)
  - Dizziness [Unknown]
  - Wheezing [Unknown]
  - Melaena [Unknown]
  - Fluid retention [Unknown]
  - Dyspnoea [Unknown]
  - Device occlusion [Unknown]
  - Hospitalisation [Unknown]

NARRATIVE: CASE EVENT DATE: 201702
